FAERS Safety Report 8771112 (Version 2)
Quarter: 2012Q4

REPORT INFORMATION
  Report Type: 
  Country: US (occurrence: US)
  Receive Date: 20120906
  Receipt Date: 20121214
  Transmission Date: 20130627
  Serious: Yes (Death, Hospitalization)
  Sender: FDA-Public Use
  Company Number: US-BRISTOL-MYERS SQUIBB COMPANY-16913931

PATIENT
  Age: 59 Year
  Sex: Female

DRUGS (12)
  1. ONGLYZA TABS 5 MG [Suspect]
  2. AMIODARONE [Concomitant]
  3. COREG [Concomitant]
  4. COLACE [Concomitant]
  5. LASIX [Concomitant]
  6. HYDRALAZINE [Concomitant]
  7. ISOSORBIDE [Concomitant]
  8. FLEXERIL [Concomitant]
  9. APRESOLINE [Concomitant]
  10. ISORDIL [Concomitant]
  11. VITAMIN D3 [Concomitant]
     Dosage: 2000 units
  12. ULTRAM [Concomitant]

REACTIONS (2)
  - Cardiac arrest [Fatal]
  - Renal failure [Unknown]
